FAERS Safety Report 9265212 (Version 7)
Quarter: 2013Q4

REPORT INFORMATION
  Report Type: Report from Study
  Country: CA (occurrence: CA)
  Receive Date: 20130501
  Receipt Date: 20131016
  Transmission Date: 20140711
  Serious: Yes (Hospitalization, Other)
  Sender: FDA-Public Use
  Company Number: CA-ROCHE-1201153

PATIENT
  Age: 51 Year
  Sex: Female
  Weight: 113.4 kg

DRUGS (20)
  1. RITUXAN [Suspect]
     Indication: RHEUMATOID ARTHRITIS
     Route: 042
     Dates: start: 20120528
  2. RITUXAN [Suspect]
     Route: 065
     Dates: start: 20130408
  3. DIPHENHYDRAMINE HCL [Concomitant]
     Indication: PREMEDICATION
     Route: 048
     Dates: start: 20120528
  4. ACETAMINOPHEN [Concomitant]
     Indication: PREMEDICATION
     Route: 048
     Dates: start: 20120528
  5. METHYLPREDNISOLONE [Concomitant]
     Indication: PREMEDICATION
     Route: 042
     Dates: start: 20120528
  6. METHOTREXATE [Concomitant]
  7. PREDNISONE [Concomitant]
  8. CELEBREX [Concomitant]
     Route: 065
  9. ACTONEL [Concomitant]
  10. EURO-FOLIC [Concomitant]
  11. CARBOCAL D [Concomitant]
  12. TYLENOL ARTHRITIS [Concomitant]
  13. TYLENOL [Concomitant]
  14. NOVO-VENLAFAXINE XR [Concomitant]
  15. ELAVIL [Concomitant]
  16. LYRICA [Concomitant]
  17. OMEPRAZOLE [Concomitant]
  18. SYNTHROID [Concomitant]
  19. GRAVOL [Concomitant]
     Route: 065
  20. ADVAIR [Concomitant]

REACTIONS (15)
  - Heart rate increased [Unknown]
  - Thrombosis [Unknown]
  - Electrocardiogram abnormal [Unknown]
  - Weight decreased [Unknown]
  - Urinary tract infection [Recovered/Resolved]
  - Palpitations [Unknown]
  - Throat tightness [Recovering/Resolving]
  - Headache [Recovered/Resolved]
  - Tension [Recovered/Resolved]
  - Poor quality sleep [Recovered/Resolved]
  - Fatigue [Recovered/Resolved]
  - Pericarditis [Not Recovered/Not Resolved]
  - Arthralgia [Not Recovered/Not Resolved]
  - Drug hypersensitivity [Unknown]
  - Bronchitis [Not Recovered/Not Resolved]
